FAERS Safety Report 24236800 (Version 4)
Quarter: 2025Q1

REPORT INFORMATION
  Report Type: Report from Study
  Country: US (occurrence: US)
  Receive Date: 20240822
  Receipt Date: 20250306
  Transmission Date: 20250408
  Serious: Yes (Other)
  Sender: ACADIA PHARMACEUTICALS
  Company Number: US-ACADIA PHARMACEUTICALS INC.-ACA-2024-PIM-004182

PATIENT
  Sex: Female

DRUGS (7)
  1. NUPLAZID [Suspect]
     Active Substance: PIMAVANSERIN TARTRATE
     Indication: Parkinson^s disease psychosis
     Dosage: 34 MILLIGRAM, QD
     Route: 048
     Dates: end: 20250131
  2. RYTARY [Suspect]
     Active Substance: CARBIDOPA\LEVODOPA
     Indication: Product used for unknown indication
  3. CLOZAPINE [Concomitant]
     Active Substance: CLOZAPINE
  4. CLOZAPINE [Concomitant]
     Active Substance: CLOZAPINE
  5. CLOZAPINE [Concomitant]
     Active Substance: CLOZAPINE
  6. GABAPENTIN [Concomitant]
     Active Substance: GABAPENTIN
  7. GALANTAMINE [Concomitant]
     Active Substance: GALANTAMINE

REACTIONS (1)
  - Hallucination [Not Recovered/Not Resolved]
